FAERS Safety Report 20542345 (Version 1)
Quarter: 2022Q1

REPORT INFORMATION
  Report Type: Spontaneous
  Country: US (occurrence: US)
  Receive Date: 20220302
  Receipt Date: 20220302
  Transmission Date: 20220423
  Serious: No
  Sender: FDA-Public Use
  Company Number: US-PFIZER INC-202200176376

PATIENT
  Age: 55 Year
  Sex: Male
  Weight: 106.59 kg

DRUGS (2)
  1. DEPO-ESTRADIOL [Suspect]
     Active Substance: ESTRADIOL CYPIONATE
     Indication: Transgender operation
     Dosage: 1MG INJECTED EVERY 14 DAYS, EVERY OTHER SATURDAY.
     Dates: start: 20150515
  2. DEPO-ESTRADIOL [Suspect]
     Active Substance: ESTRADIOL CYPIONATE
     Dosage: ONCE EVERY 2 WEEKS

REACTIONS (3)
  - Weight decreased [Unknown]
  - Blood oestrogen abnormal [Unknown]
  - Off label use [Unknown]
